FAERS Safety Report 4314636-X (Version None)
Quarter: 2004Q1

REPORT INFORMATION
  Report Type: 
  Country: None (occurrence: None)
  Receive Date: 20040308
  Receipt Date: 20040219
  Transmission Date: 20041129
  Serious: Yes (Life-Threatening, Hospitalization)
  Sender: FDA-Public Use
  Company Number: DSA_24030_2004

PATIENT
  Age: 78 Year
  Sex: Male

DRUGS (5)
  1. DILTIAZEM HYDROCHLORIDE [Suspect]
     Indication: HYPERTENSION
     Dosage: 300 MG Q DAY PO
     Route: 048
  2. NITROGLYCERIN [Suspect]
     Indication: MYOCARDIAL ISCHAEMIA
     Dosage: 1 PATCH Q DAY TD
     Route: 062
  3. TAREG [Suspect]
     Dosage: 160 MG Q DAY PO
     Route: 048
  4. PLAVIX [Concomitant]
  5. LIPANTHYL [Concomitant]

REACTIONS (13)
  - ALANINE AMINOTRANSFERASE INCREASED [None]
  - ASPARTATE AMINOTRANSFERASE INCREASED [None]
  - BLOOD AMYLASE INCREASED [None]
  - BLOOD LACTATE DEHYDROGENASE INCREASED [None]
  - BLOOD PRESSURE DIASTOLIC DECREASED [None]
  - BUNDLE BRANCH BLOCK RIGHT [None]
  - CARDIAC ARREST [None]
  - GLASGOW COMA SCALE ABNORMAL [None]
  - HEART RATE INCREASED [None]
  - HYPERKALAEMIA [None]
  - LIPASE INCREASED [None]
  - MYDRIASIS [None]
  - RENAL FAILURE [None]
